FAERS Safety Report 11179635 (Version 1)
Quarter: 2015Q2

REPORT INFORMATION
  Report Type: Spontaneous
  Country: US (occurrence: None)
  Receive Date: 20150609
  Receipt Date: 20150609
  Transmission Date: 20150821
  Serious: Yes (Death, Other)
  Sender: FDA-Public Use
  Company Number: FK201502499

PATIENT
  Age: 87 Year

DRUGS (2)
  1. NEOSTIGMINE (MANUFACTURER UNKNOWN) (NEOSTIGMINE, METHYLSULFATE) [Suspect]
     Active Substance: NEOSTIGMINE
     Indication: ANAESTHESIA REVERSAL
  2. GLYCOPYRRONIUM [Suspect]
     Active Substance: GLYCOPYRRONIUM
     Indication: ANAESTHESIA REVERSAL

REACTIONS (3)
  - Hypotension [None]
  - Electrocardiogram ST segment depression [None]
  - Cardiac arrest [None]
